FAERS Safety Report 5042587-4 (Version None)
Quarter: 2006Q2

REPORT INFORMATION
  Report Type: 
  Country: None (occurrence: None)
  Receive Date: 20060627
  Receipt Date: 20060615
  Transmission Date: 20061013
  Serious: Yes (Hospitalization, Other)
  Sender: FDA-Public Use
  Company Number: 2006076932

PATIENT
  Sex: Male

DRUGS (5)
  1. ALPRAZOLAM [Suspect]
     Indication: PANIC DISORDER
     Dosage: 0.5 MG (0.25 MG, 2 IN 1 D), ORAL
     Route: 048
     Dates: start: 19960101
  2. FLIXOTAIDE (FLUTICASONE PROPIONATE) [Concomitant]
  3. VENTOLIN [Concomitant]
  4. FLUVOXAMINE MALEATE [Concomitant]
  5. ZOPICLONE (ZOPICLONE) [Concomitant]

REACTIONS (4)
  - CHOKING SENSATION [None]
  - HEADACHE [None]
  - OESOPHAGEAL PAIN [None]
  - OESOPHAGEAL STENOSIS [None]
